FAERS Safety Report 7609476-X (Version None)
Quarter: 2011Q3

REPORT INFORMATION
  Report Type: 
  Country: None (occurrence: None)
  Receive Date: 20110714
  Receipt Date: 20110711
  Transmission Date: 20111222
  Serious: Yes (Other)
  Sender: FDA-Public Use
  Company Number: US-PFIZER INC-2011143090

PATIENT
  Sex: Male
  Weight: 80.726 kg

DRUGS (2)
  1. TOVIAZ [Suspect]
     Indication: HYPERTONIC BLADDER
     Dosage: 4 MG, 1X/DAY
     Route: 048
     Dates: start: 20110413, end: 20110627
  2. TOVIAZ [Suspect]
     Dosage: UNK
     Route: 048

REACTIONS (5)
  - ACCIDENT [None]
  - MICTURITION URGENCY [None]
  - DISTURBANCE IN ATTENTION [None]
  - DRUG INEFFECTIVE [None]
  - SOMNOLENCE [None]
